FAERS Safety Report 7971962-0 (Version None)
Quarter: 2011Q4

REPORT INFORMATION
  Report Type: 
  Country: None (occurrence: None)
  Receive Date: 20111212
  Receipt Date: 20111205
  Transmission Date: 20120403
  Serious: Yes (Hospitalization, Other)
  Sender: FDA-Public Use
  Company Number: DE-AMGEN-DEUSP2011060879

PATIENT
  Age: 25 Year
  Sex: Female
  Weight: 45 kg

DRUGS (1)
  1. ARANESP [Suspect]
     Indication: ANAEMIA
     Dosage: UNK
     Dates: start: 20110901

REACTIONS (6)
  - UNDERWEIGHT [None]
  - THERAPEUTIC RESPONSE DECREASED [None]
  - RENAL FAILURE [None]
  - HAEMOGLOBIN DECREASED [None]
  - RETICULOCYTE COUNT ABNORMAL [None]
  - ANAEMIA [None]
